FAERS Safety Report 8238834-8 (Version None)
Quarter: 2012Q1

REPORT INFORMATION
  Report Type: 
  Country: None (occurrence: None)
  Receive Date: 20120327
  Receipt Date: 20120327
  Transmission Date: 20120608
  Serious: Yes (Death)
  Sender: FDA-Public Use
  Company Number: AU-ABBOTT-12P-008-0918596-00

PATIENT
  Sex: Male

DRUGS (1)
  1. LEUPROLIDE ACETATE [Suspect]
     Indication: PRODUCT USED FOR UNKNOWN INDICATION
     Dosage: 4 MONTHLY
     Dates: start: 20111024

REACTIONS (1)
  - DEATH [None]
